FAERS Safety Report 9856735 (Version 2)
Quarter: 2014Q1

REPORT INFORMATION
  Report Type: Report from Study
  Country: JP (occurrence: JP)
  Receive Date: 20140130
  Receipt Date: 20140326
  Transmission Date: 20141002
  Serious: Yes (Life-Threatening)
  Sender: FDA-Public Use
  Company Number: JP-GLAXOSMITHKLINE-B0964087A

PATIENT
  Age: 89 Year
  Sex: Female
  Weight: 32 kg

DRUGS (21)
  1. REVOLADE [Suspect]
     Indication: IMMUNE THROMBOCYTOPENIC PURPURA
     Route: 048
     Dates: start: 20101223, end: 20110107
  2. REVOLADE [Suspect]
     Indication: IMMUNE THROMBOCYTOPENIC PURPURA
     Route: 048
     Dates: start: 20110108, end: 20110218
  3. REVOLADE [Suspect]
     Indication: IMMUNE THROMBOCYTOPENIC PURPURA
     Route: 048
     Dates: start: 20110219, end: 20110303
  4. REVOLADE [Suspect]
     Indication: IMMUNE THROMBOCYTOPENIC PURPURA
     Route: 048
     Dates: start: 20110319, end: 20110331
  5. REVOLADE [Suspect]
     Indication: IMMUNE THROMBOCYTOPENIC PURPURA
     Route: 048
     Dates: start: 20110401, end: 20120701
  6. REVOLADE [Suspect]
     Indication: IMMUNE THROMBOCYTOPENIC PURPURA
     Route: 048
     Dates: start: 20120702, end: 20120722
  7. REVOLADE [Suspect]
     Indication: IMMUNE THROMBOCYTOPENIC PURPURA
     Route: 048
     Dates: start: 20120723, end: 20120928
  8. REVOLADE [Suspect]
     Indication: IMMUNE THROMBOCYTOPENIC PURPURA
     Route: 048
     Dates: start: 20120929, end: 20130302
  9. TAKEPRON [Concomitant]
     Route: 048
  10. EVISTA [Concomitant]
     Route: 048
     Dates: end: 20111207
  11. FUROSEMIDE [Concomitant]
     Route: 048
  12. ITOROL [Concomitant]
     Route: 048
  13. MERISLON [Concomitant]
     Route: 048
     Dates: end: 20121218
  14. METHYCOBAL [Concomitant]
     Route: 048
     Dates: end: 20110909
  15. JUVELA N [Concomitant]
     Route: 048
     Dates: start: 20110305, end: 20121218
  16. MAGMITT [Concomitant]
     Route: 048
     Dates: start: 20111012, end: 20121218
  17. SEROQUEL [Concomitant]
     Route: 048
     Dates: end: 20121218
  18. BUP-4 [Concomitant]
     Route: 048
  19. ALDACTONE A [Concomitant]
     Route: 048
     Dates: end: 20111109
  20. FERROMIA [Concomitant]
     Route: 048
     Dates: start: 20111012, end: 20121207
  21. PREDONINE [Concomitant]
     Indication: IMMUNE THROMBOCYTOPENIC PURPURA
     Route: 048
     Dates: end: 20110205

REACTIONS (1)
  - Evans syndrome [Unknown]
